FAERS Safety Report 13990866 (Version 1)
Quarter: 2017Q3

REPORT INFORMATION
  Report Type: Spontaneous
  Country: US (occurrence: US)
  Receive Date: 20170920
  Receipt Date: 20170920
  Transmission Date: 20171128
  Serious: Yes (Other)
  Sender: FDA-Public Use
  Company Number: US-ALEMBIC PHARMACUETICALS LIMITED-2017SCAL000762

PATIENT

DRUGS (2)
  1. DONEPEZIL HYDROCHLORIDE. [Suspect]
     Active Substance: DONEPEZIL HYDROCHLORIDE
     Dosage: INGESTED SEVEN-TIMES HIS DAILY DOSE
  2. DONEPEZIL HYDROCHLORIDE. [Suspect]
     Active Substance: DONEPEZIL HYDROCHLORIDE
     Indication: PRODUCT USED FOR UNKNOWN INDICATION
     Dosage: UNK

REACTIONS (5)
  - Overdose [Unknown]
  - Arrhythmia [Unknown]
  - Electrocardiogram QT prolonged [Unknown]
  - Gastrointestinal disorder [Unknown]
  - Toxicity to various agents [Unknown]
